FAERS Safety Report 24978175 (Version 2)
Quarter: 2025Q3

REPORT INFORMATION
  Report Type: Spontaneous
  Country: CN (occurrence: CN)
  Receive Date: 20250217
  Receipt Date: 20250917
  Transmission Date: 20251021
  Serious: Yes (Life-Threatening, Hospitalization, Disabling, Other)
  Sender: MERCK SHARP & DOHME LLC
  Company Number: CN-009507513-2254247

PATIENT
  Age: 80 Year
  Sex: Male
  Weight: 65 kg

DRUGS (3)
  1. KEYTRUDA [Suspect]
     Active Substance: PEMBROLIZUMAB
     Indication: Hepatobiliary cancer
     Route: 041
     Dates: start: 20250125, end: 20250125
  2. LENVIMA [Concomitant]
     Active Substance: LENVATINIB
     Indication: Hepatobiliary cancer
     Dosage: 8MG QD
     Route: 048
     Dates: start: 20250124, end: 20250126
  3. sodium chloride (NORMAL SALINE) [Concomitant]
     Indication: Medication dilution
     Route: 041
     Dates: start: 20250125, end: 20250125

REACTIONS (4)
  - Stevens-Johnson syndrome [Unknown]
  - Drug eruption [Unknown]
  - Epidermal necrosis [Unknown]
  - Gastrointestinal haemorrhage [Unknown]

NARRATIVE: CASE EVENT DATE: 20250101
